FAERS Safety Report 18471734 (Version 1)
Quarter: 2020Q4

REPORT INFORMATION
  Report Type: Spontaneous
  Country: GB (occurrence: GB)
  Receive Date: 20201106
  Receipt Date: 20201106
  Transmission Date: 20210114
  Serious: Yes (Other)
  Sender: FDA-Public Use
  Company Number: GB-SHILPA MEDICARE LIMITED-SML-GB-2020-00303

PATIENT
  Age: 76 Year
  Sex: Male

DRUGS (10)
  1. CARBOPLATIN. [Suspect]
     Active Substance: CARBOPLATIN
     Indication: TRANSITIONAL CELL CARCINOMA
     Dosage: UNK
     Route: 065
  2. DOCETAXEL. [Suspect]
     Active Substance: DOCETAXEL
     Indication: TRANSITIONAL CELL CARCINOMA METASTATIC
  3. AVELUMAB [Suspect]
     Active Substance: AVELUMAB
     Indication: TRANSITIONAL CELL CARCINOMA METASTATIC
  4. CARBOPLATIN. [Suspect]
     Active Substance: CARBOPLATIN
     Indication: TRANSITIONAL CELL CARCINOMA METASTATIC
  5. GEMCITABINE, UNKNOWN [Suspect]
     Active Substance: GEMCITABINE
     Indication: TRANSITIONAL CELL CARCINOMA METASTATIC
  6. DOCETAXEL. [Suspect]
     Active Substance: DOCETAXEL
     Indication: TRANSITIONAL CELL CARCINOMA
     Dosage: UNK
     Route: 065
  7. AVELUMAB [Suspect]
     Active Substance: AVELUMAB
     Indication: TRANSITIONAL CELL CARCINOMA
     Dosage: UNK (MAINTENANCE)
     Route: 065
  8. GEMCITABINE, UNKNOWN [Suspect]
     Active Substance: GEMCITABINE
     Indication: TRANSITIONAL CELL CARCINOMA
     Dosage: UNK
     Route: 065
  9. PACLITAXEL. [Suspect]
     Active Substance: PACLITAXEL
     Indication: TRANSITIONAL CELL CARCINOMA METASTATIC
  10. PACLITAXEL. [Suspect]
     Active Substance: PACLITAXEL
     Indication: TRANSITIONAL CELL CARCINOMA
     Dosage: UNK
     Route: 065

REACTIONS (9)
  - Skin toxicity [Unknown]
  - Product use in unapproved indication [Unknown]
  - Transaminases increased [Unknown]
  - Fatigue [Unknown]
  - Haemoglobin decreased [Unknown]
  - Neoplasm progression [Unknown]
  - Nausea [Unknown]
  - Off label use [Unknown]
  - Neuropathy peripheral [Unknown]
